FAERS Safety Report 9157001 (Version 2)
Quarter: 2013Q1

REPORT INFORMATION
  Report Type: Spontaneous
  Country: ES (occurrence: ES)
  Receive Date: 20130312
  Receipt Date: 20130321
  Transmission Date: 20140127
  Serious: Yes (Death)
  Sender: FDA-Public Use
  Company Number: ES-JNJFOC-20130304899

PATIENT
  Age: 39 Year
  Sex: Female
  Weight: 104 kg

DRUGS (2)
  1. REMICADE [Suspect]
     Indication: PSORIASIS
     Dosage: 100MG FREQUENCY 0,2,3,14,22,30
     Route: 042
     Dates: start: 20120201, end: 20120507
  2. TRADJENTA [Suspect]
     Indication: PRODUCT USED FOR UNKNOWN INDICATION
     Route: 048
     Dates: start: 20120229, end: 20120708

REACTIONS (2)
  - Acute myocardial infarction [Fatal]
  - Acute pulmonary oedema [Fatal]
